FAERS Safety Report 12212146 (Version 1)
Quarter: 2016Q1

REPORT INFORMATION
  Report Type: Spontaneous
  Country: US (occurrence: US)
  Receive Date: 20160325
  Receipt Date: 20160325
  Transmission Date: 20160526
  Serious: Yes (Other)
  Sender: FDA-Public Use
  Company Number: US-PFIZER INC-2016160877

PATIENT
  Age: 19 Year
  Sex: Female

DRUGS (1)
  1. LYRICA [Suspect]
     Active Substance: PREGABALIN
     Dosage: UNK

REACTIONS (7)
  - Somnolence [Unknown]
  - Disorientation [Unknown]
  - Impaired driving ability [Unknown]
  - Road traffic accident [Unknown]
  - Dizziness [Unknown]
  - Amnesia [Unknown]
  - Homicide [Unknown]
